FAERS Safety Report 6635684-0 (Version None)
Quarter: 2010Q1

REPORT INFORMATION
  Report Type: 
  Country: None (occurrence: None)
  Receive Date: 20100312
  Receipt Date: 20100312
  Transmission Date: 20100710
  Serious: Yes (Other)
  Sender: FDA-Public Use
  Company Number: None

PATIENT
  Sex: Female
  Weight: 56.6996 kg

DRUGS (1)
  1. FOSAMAX [Suspect]
     Dosage: ONE DAY
     Dates: start: 19950110, end: 20090210

REACTIONS (3)
  - BONE PAIN [None]
  - MYALGIA [None]
  - PAIN [None]
